FAERS Safety Report 5825650-7 (Version None)
Quarter: 2008Q3

REPORT INFORMATION
  Report Type: 
  Country: None (occurrence: None)
  Receive Date: 20080729
  Receipt Date: 20080715
  Transmission Date: 20090109
  Serious: Yes (Other)
  Sender: FDA-Public Use
  Company Number: US-TEVA-174707USA

PATIENT
  Sex: Female
  Weight: 60.836 kg

DRUGS (5)
  1. SALBUTAMOL SULFATE INHALATION, 0.09 MG [Suspect]
     Indication: ASTHMA EXERCISE INDUCED
     Dosage: 2 PUFF
     Route: 050
     Dates: start: 20080524, end: 20080524
  2. SERETIDE [Concomitant]
     Dosage: 250-50
  3. MONTELUKAST SODIUM [Concomitant]
  4. FEXOFENADINE [Concomitant]
  5. PANTOPRAZOLE SODIUM [Concomitant]

REACTIONS (2)
  - DRUG EFFECT DECREASED [None]
  - MIGRAINE WITH AURA [None]
